FAERS Safety Report 20973974 (Version 1)
Quarter: 2022Q2

REPORT INFORMATION
  Report Type: Spontaneous
  Country: GB (occurrence: GB)
  Receive Date: 20220617
  Receipt Date: 20220617
  Transmission Date: 20220721
  Serious: Yes (Other)
  Sender: FDA-Public Use
  Company Number: GB-MHRA-MED-202206071404026220-CLSQR

PATIENT
  Age: 41 Year
  Sex: Female

DRUGS (4)
  1. CLARITHROMYCIN [Suspect]
     Active Substance: CLARITHROMYCIN
     Dosage: 1000 MILLIGRAM DAILY; 500MG TWICE A DAY, DURATION: 3 DAYS
     Route: 065
     Dates: start: 20220530, end: 20220602
  2. LANSOPRAZOLE [Concomitant]
     Active Substance: LANSOPRAZOLE
     Indication: Adverse drug reaction
     Dosage: UNIT DOSE: 300 MG
     Route: 065
  3. LANSOPRAZOLE [Concomitant]
     Active Substance: LANSOPRAZOLE
     Indication: Gastrooesophageal reflux disease
  4. SERTRALINE [Concomitant]
     Active Substance: SERTRALINE HYDROCHLORIDE
     Indication: Depression
     Dosage: UNIT DOSE: 150 MG
     Route: 065

REACTIONS (13)
  - Yellow skin [Recovering/Resolving]
  - Migraine [Recovering/Resolving]
  - Pyrexia [Recovered/Resolved]
  - Dizziness [Not Recovered/Not Resolved]
  - Diarrhoea [Recovered/Resolved]
  - Hyperhidrosis [Recovering/Resolving]
  - Sleep terror [Not Recovered/Not Resolved]
  - Sleep disorder [Recovering/Resolving]
  - Hypertrophy of tongue papillae [Not Recovered/Not Resolved]
  - Oral candidiasis [Not Recovered/Not Resolved]
  - Vulvovaginal candidiasis [Not Recovered/Not Resolved]
  - Hypoacusis [Not Recovered/Not Resolved]
  - Thanatophobia [Recovering/Resolving]

NARRATIVE: CASE EVENT DATE: 20220530
